FAERS Safety Report 13120493 (Version 1)
Quarter: 2017Q1

REPORT INFORMATION
  Report Type: Spontaneous
  Country: BR (occurrence: BR)
  Receive Date: 20170117
  Receipt Date: 20170117
  Transmission Date: 20170428
  Serious: Yes (Other)
  Sender: FDA-Public Use
  Company Number: BR-009507513-1701BRA006172

PATIENT
  Sex: Male

DRUGS (3)
  1. JANUVIA [Suspect]
     Active Substance: SITAGLIPTIN PHOSPHATE
     Indication: DIABETES MELLITUS
     Dosage: 100 MG TABLET (ONE TABLET IN THE MORNING)
     Route: 048
     Dates: start: 20170104, end: 20170112
  2. GLIMEPIRIDE. [Concomitant]
     Active Substance: GLIMEPIRIDE
     Dosage: UNK
     Route: 048
     Dates: start: 20170112
  3. DIAMICRON [Concomitant]
     Active Substance: GLICLAZIDE
     Indication: DIABETES MELLITUS
     Dosage: 60 MG TABLET, (ONE TABLET IN THE MORNING)
     Route: 048
     Dates: start: 20170104, end: 20170112

REACTIONS (9)
  - Nasal pruritus [Unknown]
  - Nasal congestion [Unknown]
  - Diarrhoea [Unknown]
  - Sneezing [Unknown]
  - Diabetes mellitus inadequate control [Unknown]
  - Faeces pale [Unknown]
  - Pruritus [Unknown]
  - Headache [Unknown]
  - Rhinorrhoea [Unknown]

NARRATIVE: CASE EVENT DATE: 201701
